FAERS Safety Report 11909512 (Version 1)
Quarter: 2016Q1

REPORT INFORMATION
  Report Type: Report from Study
  Country: KR (occurrence: KR)
  Receive Date: 20160112
  Receipt Date: 20160112
  Transmission Date: 20160526
  Serious: Yes (Hospitalization)
  Sender: FDA-Public Use
  Company Number: KR-AMGEN-KORCT2016002236

PATIENT
  Age: 68 Year
  Sex: Female
  Weight: 49.4 kg

DRUGS (14)
  1. CINACALCET HCL [Suspect]
     Active Substance: CINACALCET HYDROCHLORIDE
     Indication: HYPERPARATHYROIDISM SECONDARY
     Dosage: 25 MG, QD
     Route: 048
     Dates: start: 20130626, end: 20130731
  2. NORVASC [Concomitant]
     Active Substance: AMLODIPINE BESYLATE
     Dosage: UNK
     Route: 048
  3. LYRICA [Concomitant]
     Active Substance: PREGABALIN
     Dosage: UNK
     Route: 048
  4. CRESTOR [Concomitant]
     Active Substance: ROSUVASTATIN CALCIUM
     Dosage: 20 MG, UNK
     Route: 048
  5. XANAX [Concomitant]
     Active Substance: ALPRAZOLAM
     Dosage: UNK
     Route: 048
  6. CORDARONE [Concomitant]
     Active Substance: AMIODARONE HYDROCHLORIDE
     Dosage: UNK
     Route: 048
  7. RENALMIN [Concomitant]
     Dosage: UNK
     Route: 048
  8. ACETIL CISTEINA [Concomitant]
     Dosage: UNK
     Route: 048
  9. ISOKET [Concomitant]
     Active Substance: ISOSORBIDE DINITRATE
     Dosage: UNK
     Route: 048
  10. PLAVIX [Concomitant]
     Active Substance: CLOPIDOGREL BISULFATE
     Dosage: UNK
     Route: 048
     Dates: start: 20130627
  11. ASPIRIN PROTECT [Concomitant]
     Active Substance: ASPIRIN
     Dosage: UNK
     Route: 048
     Dates: start: 20130627
  12. PANTOLOC                           /01263204/ [Concomitant]
     Active Substance: PANTOPRAZOLE SODIUM
     Dosage: 20 MG, UNK
     Route: 048
  13. IRCODON [Concomitant]
     Dosage: UNK
     Route: 048
  14. CONCOR [Concomitant]
     Active Substance: BISOPROLOL FUMARATE
     Dosage: UNK
     Route: 048

REACTIONS (2)
  - Pneumonia [Recovered/Resolved]
  - Arteriovenous fistula site infection [Recovered/Resolved]

NARRATIVE: CASE EVENT DATE: 20130722
